FAERS Safety Report 10369562 (Version 2)
Quarter: 2015Q3

REPORT INFORMATION
  Report Type: Spontaneous
  Country: US (occurrence: US)
  Receive Date: 20140807
  Receipt Date: 20150708
  Transmission Date: 20151125
  Serious: Yes (Hospitalization, Other)
  Sender: FDA-Public Use
  Company Number: US-AMGEN-USASP2014012068

PATIENT
  Age: 53 Year
  Sex: Female

DRUGS (1)
  1. NEUPOGEN [Suspect]
     Active Substance: FILGRASTIM
     Indication: NEUTROPENIA
     Dosage: UNK UNK, WEEKLY
     Route: 065
     Dates: start: 201103

REACTIONS (3)
  - Platelet count decreased [Unknown]
  - Helicobacter infection [Unknown]
  - Neutrophil count decreased [Not Recovered/Not Resolved]
